FAERS Safety Report 16473764 (Version 1)
Quarter: 2019Q2

REPORT INFORMATION
  Report Type: Spontaneous
  Country: US (occurrence: US)
  Receive Date: 20190515
  Receipt Date: 20190515
  Transmission Date: 20190711
  Serious: No
  Sender: FDA-Public Use
  Company Number: None

PATIENT
  Age: 67 Year
  Sex: Female

DRUGS (1)
  1. PROLIA [Suspect]
     Active Substance: DENOSUMAB
     Indication: BONE DISORDER
     Route: 058
     Dates: start: 20180810

REACTIONS (19)
  - Memory impairment [None]
  - Palpitations [None]
  - General physical health deterioration [None]
  - Pain [None]
  - Burning sensation [None]
  - Muscle spasms [None]
  - Middle insomnia [None]
  - Fibromyalgia [None]
  - Arthralgia [None]
  - Impaired driving ability [None]
  - Back pain [None]
  - Bone cancer [None]
  - Fatigue [None]
  - Apparent death [None]
  - Injection site pain [None]
  - Musculoskeletal stiffness [None]
  - Pain in extremity [None]
  - Tearfulness [None]
  - Gait inability [None]

NARRATIVE: CASE EVENT DATE: 20180810
